FAERS Safety Report 9402648 (Version 1)
Quarter: 2013Q3

REPORT INFORMATION
  Report Type: Spontaneous
  Country: US (occurrence: US)
  Receive Date: 20130716
  Receipt Date: 20130716
  Transmission Date: 20140515
  Serious: No
  Sender: FDA-Public Use
  Company Number: US-BAYER-2013-084325

PATIENT
  Sex: Female

DRUGS (1)
  1. CIPRO [Suspect]
     Route: 048

REACTIONS (2)
  - Malaise [None]
  - Vomiting [None]
